FAERS Safety Report 6582703-6 (Version None)
Quarter: 2010Q1

REPORT INFORMATION
  Report Type: 
  Country: None (occurrence: None)
  Receive Date: 20100212
  Receipt Date: 20100212
  Transmission Date: 20100710
  Serious: Yes (Life-Threatening, Hospitalization)
  Sender: FDA-Public Use
  Company Number: None

PATIENT
  Age: 61 Year
  Sex: Male

DRUGS (2)
  1. GABAPENTIN [Suspect]
     Indication: PAIN
     Dosage: 600 MG TID PO
     Route: 048
     Dates: end: 20090622
  2. HYDROCODONE BITARTRATE AND ACETAMINOPHEN [Suspect]
     Dosage: MG OTHER PO
     Route: 048
     Dates: end: 20090622

REACTIONS (2)
  - DIFFUSE ALVEOLAR DAMAGE [None]
  - RESPIRATORY DEPRESSION [None]
